FAERS Safety Report 4431604-8 (Version None)
Quarter: 2004Q3

REPORT INFORMATION
  Report Type: 
  Country: None (occurrence: None)
  Receive Date: 20040726
  Receipt Date: 20031205
  Transmission Date: 20050211
  Serious: No
  Sender: FDA-Public Use
  Company Number: REM_00046_2003

PATIENT
  Age: 33 Year
  Sex: Female
  Weight: 146 kg

DRUGS (11)
  1. REMODULIN [Suspect]
     Indication: PULMONARY HYPERTENSION
     Dosage: 2.5 NG/KG/MIN CONTINUOUS SC
     Route: 058
     Dates: start: 20031120
  2. ZONEGRAN [Concomitant]
  3. NASACORT AQ [Concomitant]
  4. LASIX [Concomitant]
  5. ISOSORB RETARD [Concomitant]
  6. K-DUR 10 [Concomitant]
  7. REGLAN [Concomitant]
  8. EFFEXOR [Concomitant]
  9. FLEXERIL [Concomitant]
  10. ASPIRIN [Concomitant]
  11. TYLENOL W/ CODEINE NO. 3 [Concomitant]

REACTIONS (3)
  - CONVULSION [None]
  - INFUSION SITE PAIN [None]
  - SYNCOPE [None]
